FAERS Safety Report 20830519 (Version 1)
Quarter: 2022Q2

REPORT INFORMATION
  Report Type: Spontaneous
  Country: ES (occurrence: ES)
  Receive Date: 20220514
  Receipt Date: 20220514
  Transmission Date: 20220721
  Serious: Yes (Other)
  Sender: FDA-Public Use
  Company Number: ES-NOVARTISPH-NVSC2022ES074421

PATIENT
  Age: 50 Year
  Sex: Female

DRUGS (4)
  1. LETROZOLE [Suspect]
     Active Substance: LETROZOLE
     Indication: Breast cancer metastatic
     Dosage: UNKNOWN
     Route: 065
     Dates: start: 20220127
  2. ABEMACICLIB [Suspect]
     Active Substance: ABEMACICLIB
     Indication: Breast cancer metastatic
     Dosage: 300 MG, QD (150 MG, BID, 1-0-1)
     Route: 048
     Dates: start: 20220127
  3. ABEMACICLIB [Suspect]
     Active Substance: ABEMACICLIB
     Dosage: 200 MG, QD (100 MG, BID, EVERY 12 HOURS)
     Route: 048
     Dates: start: 20220307
  4. ABEMACICLIB [Suspect]
     Active Substance: ABEMACICLIB
     Dosage: 200 MG, QD (100 MG, BID, EVERY 12 HOURS)
     Route: 048
     Dates: start: 20220307

REACTIONS (10)
  - Urinary retention [Unknown]
  - Muscle spasms [Recovering/Resolving]
  - Poor quality sleep [Unknown]
  - Fatigue [Recovering/Resolving]
  - Nausea [Recovering/Resolving]
  - Dysgeusia [Unknown]
  - Headache [Recovering/Resolving]
  - Asthenia [Recovering/Resolving]
  - Diarrhoea [Recovered/Resolved]
  - Diarrhoea [Recovering/Resolving]

NARRATIVE: CASE EVENT DATE: 20220224
